FAERS Safety Report 7004305-X (Version None)
Quarter: 2010Q3

REPORT INFORMATION
  Report Type: 
  Country: None (occurrence: None)
  Receive Date: 20100921
  Receipt Date: 20100913
  Transmission Date: 20110219
  Serious: Yes (Hospitalization)
  Sender: FDA-Public Use
  Company Number: US-BIOGENIDEC-2010BI030036

PATIENT
  Age: 70 Year
  Sex: Female

DRUGS (2)
  1. AVONEX [Suspect]
     Indication: MULTIPLE SCLEROSIS
     Route: 030
     Dates: start: 20011208, end: 20030804
  2. AVONEX [Suspect]
     Route: 030
     Dates: start: 20040301

REACTIONS (8)
  - DIPLOPIA [None]
  - FLUID RETENTION [None]
  - GASTRIC POLYPS [None]
  - HAEMOGLOBIN DECREASED [None]
  - INJECTION SITE ERYTHEMA [None]
  - INJECTION SITE HAEMATOMA [None]
  - OROPHARYNGEAL PAIN [None]
  - SYNCOPE [None]
